FAERS Safety Report 9712959 (Version 2)
Quarter: 2014Q4

REPORT INFORMATION
  Report Type: Spontaneous
  Country: US (occurrence: US)
  Receive Date: 20131126
  Receipt Date: 20141205
  Transmission Date: 20150529
  Serious: No
  Sender: FDA-Public Use
  Company Number: US-BRISTOL-MYERS SQUIBB COMPANY-18943126

PATIENT
  Sex: Male

DRUGS (1)
  1. BYDUREON [Suspect]
     Active Substance: EXENATIDE
     Indication: DIABETES MELLITUS
     Dosage: EXPIRATION DATE: JUNE 2016
     Route: 058

REACTIONS (3)
  - Product quality issue [Unknown]
  - Injection site extravasation [Unknown]
  - Injection site haemorrhage [Unknown]
